FAERS Safety Report 25756031 (Version 1)
Quarter: 2025Q3

REPORT INFORMATION
  Report Type: Spontaneous
  Country: CN (occurrence: CN)
  Receive Date: 20250903
  Receipt Date: 20250903
  Transmission Date: 20251020
  Serious: Yes (Other)
  Sender: PFIZER
  Company Number: CN-PFIZER INC-202500173497

PATIENT
  Age: 67 Year
  Sex: Female
  Weight: 56 kg

DRUGS (3)
  1. VORICONAZOLE [Suspect]
     Active Substance: VORICONAZOLE
     Dosage: 200 MG, 2X/DAY Q12H
     Dates: start: 20250806
  2. MEROPENEM [Suspect]
     Active Substance: MEROPENEM
     Dosage: 1 G, 3X/DAY Q8H
     Dates: start: 20250805
  3. LEVOFLOXACIN [Suspect]
     Active Substance: LEVOFLOXACIN
     Dosage: 0.5 G, 1X/DAY
     Dates: start: 20250806

REACTIONS (4)
  - Pneumonitis [Unknown]
  - Procalcitonin increased [Unknown]
  - C-reactive protein increased [Unknown]
  - Interleukin level increased [Unknown]

NARRATIVE: CASE EVENT DATE: 20250811
